FAERS Safety Report 10404050 (Version 2)
Quarter: 2014Q3

REPORT INFORMATION
  Report Type: Report from Study
  Country: GB (occurrence: GB)
  Receive Date: 20140822
  Receipt Date: 20140822
  Transmission Date: 20150326
  Serious: Yes (Other)
  Sender: FDA-Public Use
  Company Number: GB-ASTRAZENECA-2014SE14840

PATIENT
  Age: 69 Year
  Sex: Male
  Weight: 57.5 kg

DRUGS (5)
  1. VANDETANIB. [Suspect]
     Active Substance: VANDETANIB
     Indication: SYNOVIAL SARCOMA
     Route: 048
     Dates: start: 20140207, end: 20140227
  2. VANDETANIB. [Suspect]
     Active Substance: VANDETANIB
     Indication: SYNOVIAL SARCOMA
     Route: 048
     Dates: start: 20140311
  3. AZD6244 [Suspect]
     Active Substance: SELUMETINIB
     Indication: SYNOVIAL SARCOMA
     Route: 048
     Dates: start: 20140218, end: 20140227
  4. VANDETANIB. [Suspect]
     Active Substance: VANDETANIB
     Indication: SYNOVIAL SARCOMA
     Route: 048
     Dates: start: 20140203, end: 20140206
  5. AZD6244 [Suspect]
     Active Substance: SELUMETINIB
     Indication: SYNOVIAL SARCOMA
     Route: 048
     Dates: start: 20140311

REACTIONS (1)
  - Retinal detachment [Recovered/Resolved]

NARRATIVE: CASE EVENT DATE: 20140224
